FAERS Safety Report 9122645 (Version 1)
Quarter: 2013Q1

REPORT INFORMATION
  Report Type: Spontaneous
  Country: US (occurrence: US)
  Receive Date: 20130115
  Receipt Date: 20130115
  Transmission Date: 20140127
  Serious: Yes (Hospitalization, Other)
  Sender: FDA-Public Use
  Company Number: US-009507513-1301USA002116

PATIENT
  Sex: Female

DRUGS (4)
  1. MONTELUKAST SODIUM [Suspect]
     Dosage: 100 MG, UNK
     Route: 048
  2. LORAZEPAM [Suspect]
     Dosage: 2 MG, UNK
     Route: 048
  3. OPIPRAMOL HYDROCHLORIDE [Suspect]
     Dosage: 550 MG, UNK
     Route: 048
  4. FLURAZEPAM HYDROCHLORIDE [Suspect]

REACTIONS (3)
  - Suicide attempt [Unknown]
  - Overdose [Unknown]
  - Agitation [Unknown]
